FAERS Safety Report 17623162 (Version 2)
Quarter: 2020Q3

REPORT INFORMATION
  Report Type: Report from Study
  Country: FR (occurrence: FR)
  Receive Date: 20200403
  Receipt Date: 20200908
  Transmission Date: 20201102
  Serious: Yes (Death, Other)
  Sender: FDA-Public Use
  Company Number: FR-JAZZ-2020-FR-004446

PATIENT

DRUGS (1)
  1. DEFITELIO [Suspect]
     Active Substance: DEFIBROTIDE SODIUM
     Indication: VENOOCCLUSIVE DISEASE
     Dosage: 21 MILLIGRAM/KILOGRAM/DAY
     Route: 042
     Dates: start: 20190219, end: 20190223

REACTIONS (3)
  - Off label use [Unknown]
  - Acute graft versus host disease in liver [Unknown]
  - Death [Fatal]

NARRATIVE: CASE EVENT DATE: 20190219
